FAERS Safety Report 6852975-9 (Version None)
Quarter: 2010Q3

REPORT INFORMATION
  Report Type: 
  Country: None (occurrence: None)
  Receive Date: 20100717
  Receipt Date: 20071128
  Transmission Date: 20110219
  Serious: No
  Sender: FDA-Public Use
  Company Number: US-PFIZER INC-2007102038

PATIENT
  Sex: Female

DRUGS (6)
  1. CHANTIX [Suspect]
     Indication: SMOKING CESSATION THERAPY
     Dates: start: 20071108
  2. SEROQUEL [Concomitant]
  3. ZOLOFT [Concomitant]
  4. ACCURETIC [Concomitant]
  5. GLUCOPHAGE [Concomitant]
  6. ALL OTHER THERAPEUTIC PRODUCTS [Concomitant]

REACTIONS (3)
  - MIDDLE INSOMNIA [None]
  - MIGRAINE [None]
  - TOBACCO USER [None]
